FAERS Safety Report 4960861-4 (Version None)
Quarter: 2006Q2

REPORT INFORMATION
  Report Type: 
  Country: None (occurrence: None)
  Receive Date: 20060403
  Receipt Date: 20060323
  Transmission Date: 20061013
  Serious: Yes (Hospitalization)
  Sender: FDA-Public Use
  Company Number: US-ROCHE-441811

PATIENT
  Age: 38 Year
  Sex: Male

DRUGS (5)
  1. FUZEON [Suspect]
     Dosage: ROUTE: INJECTION. DURATION REPORTED AS TWO TO THREE WEEKS.
     Route: 050
     Dates: start: 20030615
  2. FUZEON [Suspect]
     Dosage: ROUTE OF SECOND THERAPY REPORTED AS INJECTABLE.
     Route: 050
     Dates: start: 20060215
  3. TRUVADA [Concomitant]
     Indication: SYSTEMIC ANTIVIRAL TREATMENT
  4. SUSTIVA [Concomitant]
     Indication: SYSTEMIC ANTIVIRAL TREATMENT
  5. NORVIR [Concomitant]
     Indication: SYSTEMIC ANTIVIRAL TREATMENT

REACTIONS (4)
  - APPENDICITIS PERFORATED [None]
  - INJECTION SITE PAIN [None]
  - INJECTION SITE SWELLING [None]
  - INJECTION SITE URTICARIA [None]
